FAERS Safety Report 17814354 (Version 2)
Quarter: 2021Q3

REPORT INFORMATION
  Report Type: Spontaneous
  Country: CA (occurrence: CA)
  Receive Date: 20200522
  Receipt Date: 20210702
  Transmission Date: 20211014
  Serious: Yes (Hospitalization)
  Sender: FDA-Public Use
  Company Number: CA-ROCHE-2602482

PATIENT
  Age: 36 Year
  Sex: Male

DRUGS (7)
  1. BORTEZOMIB. [Suspect]
     Active Substance: BORTEZOMIB
     Indication: THROMBOTIC THROMBOCYTOPENIC PURPURA
     Route: 042
  2. PROCYTOX [Suspect]
     Active Substance: CYCLOPHOSPHAMIDE
     Indication: PRODUCT USED FOR UNKNOWN INDICATION
     Route: 042
  3. ACITRETIN. [Concomitant]
     Active Substance: ACITRETIN
     Indication: PSORIASIS
  4. CICLOSPORIN [Suspect]
     Active Substance: CYCLOSPORINE
     Indication: THROMBOTIC THROMBOCYTOPENIC PURPURA
     Route: 048
  5. METHYLPREDNISOLONE. [Suspect]
     Active Substance: METHYLPREDNISOLONE
     Indication: THROMBOTIC THROMBOCYTOPENIC PURPURA
     Route: 065
  6. RITUXIMAB. [Suspect]
     Active Substance: RITUXIMAB
     Indication: THROMBOTIC THROMBOCYTOPENIC PURPURA
     Route: 065
  7. ACETYLCYSTEINE. [Concomitant]
     Active Substance: ACETYLCYSTEINE
     Route: 042

REACTIONS (3)
  - Empyema [Unknown]
  - Abdominal abscess [Unknown]
  - Device related sepsis [Unknown]
